FAERS Safety Report 7576584-1 (Version None)
Quarter: 2011Q2

REPORT INFORMATION
  Report Type: 
  Country: None (occurrence: None)
  Receive Date: 20110628
  Receipt Date: 20110512
  Transmission Date: 20111010
  Serious: No
  Sender: FDA-Public Use
  Company Number: US-BAYER-2011-043993

PATIENT

DRUGS (2)
  1. ALEVE (CAPLET) [Suspect]
     Dosage: 2 DF, UNK
     Route: 048
  2. EXCEDRIN (MIGRAINE) [Concomitant]

REACTIONS (2)
  - NO ADVERSE EVENT [None]
  - NAUSEA [None]
